FAERS Safety Report 7470450-8 (Version None)
Quarter: 2011Q2

REPORT INFORMATION
  Report Type: 
  Country: None (occurrence: None)
  Receive Date: 20110510
  Receipt Date: 20110427
  Transmission Date: 20111010
  Serious: Yes (Hospitalization)
  Sender: FDA-Public Use
  Company Number: CA-JNJFOC-20110500253

PATIENT
  Sex: Male
  Weight: 91 kg

DRUGS (7)
  1. LIPITOR [Concomitant]
     Route: 065
  2. DIOVEN [Concomitant]
     Route: 065
  3. ASPIRIN [Concomitant]
  4. AZATHIOPRINE [Concomitant]
     Route: 065
  5. MESALAMINE [Concomitant]
     Route: 065
  6. NEXIUM [Concomitant]
     Route: 065
  7. REMICADE [Suspect]
     Indication: COLITIS ULCERATIVE
     Route: 042

REACTIONS (1)
  - KNEE ARTHROPLASTY [None]
